FAERS Safety Report 23193572 (Version 1)
Quarter: 2023Q4

REPORT INFORMATION
  Report Type: Spontaneous
  Country: CN (occurrence: CN)
  Receive Date: 20231116
  Receipt Date: 20231116
  Transmission Date: 20240110
  Serious: Yes (Life-Threatening)
  Sender: FDA-Public Use
  Company Number: CN-NAPPMUNDI-GBR-2023-0112265

PATIENT
  Age: 72 Year
  Sex: Male

DRUGS (1)
  1. OXYCODONE HYDROCHLORIDE [Suspect]
     Active Substance: OXYCODONE HYDROCHLORIDE
     Indication: Rectal cancer
     Dosage: 10 MILLIGRAM, BID
     Route: 048
     Dates: start: 20231008, end: 20231026

REACTIONS (5)
  - Mental impairment [Recovering/Resolving]
  - Unresponsive to stimuli [Recovering/Resolving]
  - Miosis [Recovering/Resolving]
  - Respiratory depression [Recovering/Resolving]
  - Toxicity to various agents [Recovering/Resolving]

NARRATIVE: CASE EVENT DATE: 20231026
